FAERS Safety Report 20769339 (Version 1)
Quarter: 2022Q2

REPORT INFORMATION
  Report Type: Spontaneous
  Country: US (occurrence: None)
  Receive Date: 20220429
  Receipt Date: 20220429
  Transmission Date: 20220721
  Serious: No
  Sender: FDA-Public Use
  Company Number: None

PATIENT
  Age: 58 Year
  Sex: Female
  Weight: 72.49 kg

DRUGS (3)
  1. CYTARABINE [Suspect]
     Active Substance: CYTARABINE
     Dates: end: 20220404
  2. METHOTREXATE [Suspect]
     Active Substance: METHOTREXATE
     Dates: end: 20220401
  3. SPRYCEL [Suspect]
     Active Substance: DASATINIB
     Dates: end: 20220410

REACTIONS (3)
  - Body temperature increased [None]
  - White blood cell count decreased [None]
  - SARS-CoV-2 test negative [None]

NARRATIVE: CASE EVENT DATE: 20220411
